FAERS Safety Report 24725504 (Version 1)
Quarter: 2024Q4

REPORT INFORMATION
  Report Type: Spontaneous
  Country: HK (occurrence: HK)
  Receive Date: 20241212
  Receipt Date: 20241212
  Transmission Date: 20250115
  Serious: Yes (Death, Other)
  Sender: HELSINN HEALTHCARE
  Company Number: HK-HBP-2024HK031478

PATIENT
  Age: 37 Year
  Sex: Female

DRUGS (3)
  1. NETUPITANT\PALONOSETRON [Suspect]
     Active Substance: NETUPITANT\PALONOSETRON
     Indication: Prophylaxis of nausea and vomiting
     Dosage: UNK, UNKNOWN
     Route: 065
  2. DEXAMETHASONE [Suspect]
     Active Substance: DEXAMETHASONE
     Indication: Prophylaxis of nausea and vomiting
     Dosage: UNK, UNKNOWN
     Route: 065
  3. ADRIAMYCIN [Suspect]
     Active Substance: DOXORUBICIN HYDROCHLORIDE
     Indication: Phyllodes tumour
     Dosage: UNK, UNKNOWN
     Route: 065

REACTIONS (11)
  - General physical health deterioration [Fatal]
  - Febrile neutropenia [Unknown]
  - Malignant pleural effusion [Unknown]
  - Hypoxia [Unknown]
  - Lung consolidation [Unknown]
  - Chest wall mass [Unknown]
  - Coagulopathy [Unknown]
  - Respiratory acidosis [Unknown]
  - Metabolic acidosis [Unknown]
  - Leukocytosis [Unknown]
  - Tachycardia [Unknown]
